FAERS Safety Report 13063283 (Version 1)
Quarter: 2016Q4

REPORT INFORMATION
  Report Type: Report from Study
  Country: US (occurrence: US)
  Receive Date: 20161227
  Receipt Date: 20161227
  Transmission Date: 20170207
  Serious: Yes (Other)
  Sender: FDA-Public Use
  Company Number: US-ROCHE-1870502

PATIENT

DRUGS (5)
  1. CALCIUM CARBONATE. [Concomitant]
     Active Substance: CALCIUM CARBONATE
     Route: 048
  2. BEVACIZUMAB [Suspect]
     Active Substance: BEVACIZUMAB
     Indication: NEUROBLASTOMA
     Dosage: 10 MG/KG/DOSE, BEGINNING ON DAY 0 OF THE SECOND COURSE OVER 30-90 MINUTES
     Route: 042
  3. CYTOXAN [Suspect]
     Active Substance: CYCLOPHOSPHAMIDE
     Route: 048
  4. ZOMETA [Suspect]
     Active Substance: ZOLEDRONIC ACID
     Indication: NEUROBLASTOMA
     Dosage: OVER 15 MINUTES ON DAY 0
     Route: 042
     Dates: start: 20140224
  5. CYTOXAN [Suspect]
     Active Substance: CYCLOPHOSPHAMIDE
     Indication: NEUROBLASTOMA
     Dosage: ACCORDING TO THE PROTOCOL ASSIGNED DOSE LEVEL OVER 1 HOUR
     Route: 040
     Dates: start: 20140224

REACTIONS (3)
  - Hepatotoxicity [Recovered/Resolved]
  - Lymphopenia [Unknown]
  - Neutrophil count decreased [Unknown]
